FAERS Safety Report 6443319-5 (Version None)
Quarter: 2009Q4

REPORT INFORMATION
  Report Type: 
  Country: None (occurrence: None)
  Receive Date: 20091117
  Receipt Date: 20091106
  Transmission Date: 20100525
  Serious: No
  Sender: FDA-Public Use
  Company Number: US-BAYER-200938086NA

PATIENT
  Sex: Female

DRUGS (2)
  1. BETASERON [Suspect]
     Indication: MULTIPLE SCLEROSIS
     Route: 058
     Dates: start: 20040101
  2. PREDNISONE [Concomitant]
     Indication: MULTIPLE SCLEROSIS
     Dosage: COUPLE OF TIMES A MONTH
     Route: 065
     Dates: start: 19860101

REACTIONS (3)
  - INJECTION SITE HYPERSENSITIVITY [None]
  - INJECTION SITE MASS [None]
  - INJECTION SITE RASH [None]
